FAERS Safety Report 22526146 (Version 3)
Quarter: 2024Q1

REPORT INFORMATION
  Report Type: Spontaneous
  Country: US (occurrence: US)
  Receive Date: 20230606
  Receipt Date: 20240318
  Transmission Date: 20240410
  Serious: Yes (Hospitalization)
  Sender: FDA-Public Use
  Company Number: US-PFIZER INC-202300208783

PATIENT
  Age: 11 Year
  Sex: Female
  Weight: 44.91 kg

DRUGS (6)
  1. OXBRYTA [Suspect]
     Active Substance: VOXELOTOR
     Indication: Sickle cell anaemia with crisis
     Dosage: 1500 MG, DAILY
     Route: 048
     Dates: start: 202302
  2. OXBRYTA [Suspect]
     Active Substance: VOXELOTOR
     Dosage: 500MG, 3 TABLETS ONCE DAILY
     Route: 048
  3. HYDROXYUREA [Concomitant]
     Active Substance: HYDROXYUREA
     Indication: Pain
     Dosage: 1 DF, DAILY(TAKES ONE PILL A DAY AT SAME TIME, 7PM)
  4. FOLIC ACID [Concomitant]
     Active Substance: FOLIC ACID
     Indication: Myelosuppression
     Dosage: 1 DF, DAILY (SINCE BIRTH)
  5. CHOLECALCIFEROL [Concomitant]
     Active Substance: CHOLECALCIFEROL
     Indication: Anaemia
     Dosage: 1 DF, DAILY(THINKS 1000MG)
  6. CHOLECALCIFEROL [Concomitant]
     Active Substance: CHOLECALCIFEROL
     Indication: Bone disorder

REACTIONS (2)
  - Sickle cell anaemia with crisis [Recovered/Resolved]
  - Pain [Unknown]

NARRATIVE: CASE EVENT DATE: 20230101
